FAERS Safety Report 22251999 (Version 5)
Quarter: 2023Q4

REPORT INFORMATION
  Report Type: Report from Study
  Country: AU (occurrence: AU)
  Receive Date: 20230425
  Receipt Date: 20231117
  Transmission Date: 20240110
  Serious: Yes (Hospitalization)
  Sender: FDA-Public Use
  Company Number: AU-ABBVIE-4739161

PATIENT
  Age: 24 Year
  Sex: Female
  Weight: 62.6 kg

DRUGS (5)
  1. UPADACITINIB [Suspect]
     Active Substance: UPADACITINIB
     Indication: Dermatitis atopic
     Route: 048
     Dates: start: 20230307, end: 20230420
  2. UPADACITINIB [Suspect]
     Active Substance: UPADACITINIB
     Indication: Dermatitis atopic
     Route: 048
     Dates: start: 20230421
  3. SWISSE ULTIBOOST IRON [Concomitant]
     Indication: Supplementation therapy
     Dosage: ONE TABLET
     Route: 048
     Dates: start: 202301
  4. FEXOFENADINE [Concomitant]
     Active Substance: FEXOFENADINE HYDROCHLORIDE
     Indication: Seasonal allergy
     Dosage: TIME INTERVAL: AS NECESSARY: ONE TABLET
     Route: 048
     Dates: start: 202211
  5. SWISSE ULTIBOOST ZINC+ [Concomitant]
     Indication: Supplementation therapy
     Dosage: 1 TABLET
     Route: 048
     Dates: start: 202301

REACTIONS (1)
  - Dermatitis [Recovered/Resolved]

NARRATIVE: CASE EVENT DATE: 20230413
